FAERS Safety Report 7425023-X (Version None)
Quarter: 2011Q2

REPORT INFORMATION
  Report Type: 
  Country: None (occurrence: None)
  Receive Date: 20110419
  Receipt Date: 20110406
  Transmission Date: 20111010
  Serious: Yes (Hospitalization)
  Sender: FDA-Public Use
  Company Number: DE-MYLANLABS-2011S1007366

PATIENT
  Sex: Female

DRUGS (2)
  1. ALPROSTADIL [Concomitant]
     Indication: PATENT DUCTUS ARTERIOSUS
     Route: 041
  2. FENTANYL [Suspect]
     Indication: ANALGESIC THERAPY
     Dosage: 2 MICROG/KG/H
     Route: 041

REACTIONS (1)
  - POSTOPERATIVE ILEUS [None]
